FAERS Safety Report 6004725-6 (Version None)
Quarter: 2008Q4

REPORT INFORMATION
  Report Type: 
  Country: None (occurrence: None)
  Receive Date: 20081216
  Receipt Date: 20081211
  Transmission Date: 20090506
  Serious: Yes (Hospitalization)
  Sender: FDA-Public Use
  Company Number: FR-B.I. PHARMACEUTICALS,INC./RIDGEFIELD-2008-FF-00894FF

PATIENT
  Sex: Female

DRUGS (2)
  1. MICARDIS HCT [Suspect]
     Route: 048
     Dates: start: 20070601, end: 20080615
  2. LUCENTIS [Concomitant]
     Indication: MACULAR DEGENERATION
     Route: 031
     Dates: start: 20080110, end: 20080221

REACTIONS (2)
  - DERMATITIS PSORIASIFORM [None]
  - HYPERKERATOSIS PALMARIS AND PLANTARIS [None]
